FAERS Safety Report 15017073 (Version 4)
Quarter: 2018Q3

REPORT INFORMATION
  Report Type: Report from Study
  Country: JP (occurrence: JP)
  Receive Date: 20180615
  Receipt Date: 20180713
  Transmission Date: 20181010
  Serious: Yes (Death)
  Sender: FDA-Public Use
  Company Number: JP-TAIHO ONCOLOGY INC-JPTT180481

PATIENT
  Age: 74 Year
  Sex: Male
  Weight: 59 kg

DRUGS (12)
  1. FUROSEMIDE. [Concomitant]
     Active Substance: FUROSEMIDE
     Indication: OEDEMA PERIPHERAL
     Dosage: NUMBER OF DIVIDED DOSES NOT REPORTED
     Route: 048
     Dates: start: 20180512, end: 20180606
  2. FORXIGA [Concomitant]
     Active Substance: DAPAGLIFLOZIN
     Indication: TYPE 2 DIABETES MELLITUS
     Dosage: DOSE NOT REPORTED, IN THE MORNING
     Route: 048
  3. LONSURF [Suspect]
     Active Substance: TIPIRACIL HYDROCHLORIDE\TRIFLURIDINE
     Indication: RECTAL CANCER
     Dosage: 55 MG X 2/DAY, ON DAYS 1?5 AND 8?12 OF EACH 28?DAY CYCLE
     Route: 048
     Dates: start: 20180510, end: 20180521
  4. AVASTIN [Suspect]
     Active Substance: BEVACIZUMAB
     Indication: RECTAL CANCER
     Route: 041
     Dates: start: 20180510, end: 20180510
  5. LANTUS [Concomitant]
     Active Substance: INSULIN GLARGINE
     Indication: TYPE 2 DIABETES MELLITUS
     Dosage: IN THE MORNING
     Route: 058
  6. EQUA [Concomitant]
     Active Substance: VILDAGLIPTIN
     Indication: TYPE 2 DIABETES MELLITUS
     Dosage: IN THE MORNING AND EVENING
     Route: 048
  7. APIDRA [Concomitant]
     Active Substance: INSULIN GLULISINE
     Indication: TYPE 2 DIABETES MELLITUS
     Dosage: IN 3 DIVIDED DOSES (4 UNITS, 8 UNITS, 4 UNITS)
     Route: 058
  8. DERMOVATE [Concomitant]
     Active Substance: CLOBETASOL
     Indication: SKIN FISSURES
     Dosage: 2?3 TIMES/DAY, APPLIED ON THE HANDS AND FEET
     Route: 061
     Dates: start: 20180512
  9. LOCOID [Concomitant]
     Active Substance: HYDROCORTISONE BUTYRATE
     Indication: RASH
     Dosage: 2?3 TIMES/DAY, APPLIED ON THE FACE
     Route: 061
     Dates: start: 20180512
  10. DERMOVATE [Concomitant]
     Active Substance: CLOBETASOL
     Indication: PARONYCHIA
  11. BESOFTEN [Concomitant]
     Active Substance: PENTOSAN POLYSULFATE SODIUM
     Indication: RASH
     Dosage: 2?3 TIMES/DAY, APPLIED ON THE BODY
     Route: 061
     Dates: start: 20180512
  12. RINDERON VG [Concomitant]
     Active Substance: BETAMETHASONE VALERATE\GENTAMICIN SULFATE
     Indication: RASH
     Dosage: 1?2 TIMES/DAY, APPLIED ON THE SCALP
     Route: 061
     Dates: start: 20180512

REACTIONS (1)
  - Acute myocardial infarction [Fatal]

NARRATIVE: CASE EVENT DATE: 20180607
